FAERS Safety Report 4279529-5 (Version None)
Quarter: 2004Q1

REPORT INFORMATION
  Report Type: 
  Country: None (occurrence: None)
  Receive Date: 20040126
  Receipt Date: 20040126
  Transmission Date: 20041129
  Serious: No
  Sender: FDA-Public Use
  Company Number: None

PATIENT
  Age: 85 Year
  Sex: Male

DRUGS (6)
  1. CELEBREX [Suspect]
     Indication: PAIN
     Dosage: 200MG DAILY ORAL
     Route: 048
     Dates: start: 20030707, end: 20030714
  2. MAXZIDE [Concomitant]
  3. ATENOLOL [Concomitant]
  4. FOSINOPRIL SODIUM [Concomitant]
  5. ASPIRIN [Concomitant]
  6. IBUPROFEN [Concomitant]

REACTIONS (1)
  - RENAL FAILURE ACUTE [None]
